FAERS Safety Report 11523700 (Version 1)
Quarter: 2015Q3

REPORT INFORMATION
  Report Type: Spontaneous
  Country: US (occurrence: US)
  Receive Date: 20150903
  Receipt Date: 20150903
  Transmission Date: 20151125
  Serious: No
  Sender: FDA-Public Use
  Company Number: US-ELI_LILLY_AND_COMPANY-US201303001594

PATIENT
  Sex: Female

DRUGS (27)
  1. LYRICA [Concomitant]
     Active Substance: PREGABALIN
  2. CYTOMEL [Concomitant]
     Active Substance: LIOTHYRONINE SODIUM
  3. NOVOLOG [Concomitant]
     Active Substance: INSULIN ASPART
     Indication: DIABETES MELLITUS
  4. LANTUS [Concomitant]
     Active Substance: INSULIN GLARGINE
  5. POLYSPORIN                         /00259001/ [Concomitant]
  6. FLOXIN [Concomitant]
     Active Substance: OFLOXACIN
  7. ADVIL [Concomitant]
     Active Substance: IBUPROFEN
  8. KEFLEX [Concomitant]
     Active Substance: CEPHALEXIN
  9. TYLOX [Concomitant]
     Active Substance: ACETAMINOPHEN\OXYCODONE HYDROCHLORIDE
  10. ZETIA [Concomitant]
     Active Substance: EZETIMIBE
  11. ALDACTONE [Concomitant]
     Active Substance: SPIRONOLACTONE
     Dosage: 50 MG, BID
  12. DEMEROL [Concomitant]
     Active Substance: MEPERIDINE HYDROCHLORIDE
  13. LEVAQUIN [Concomitant]
     Active Substance: LEVOFLOXACIN
  14. PREMARIN [Concomitant]
     Active Substance: ESTROGENS, CONJUGATED
     Dosage: .9 MG, QD
  15. COMPAZINE [Concomitant]
     Active Substance: PROCHLORPERAZINE MALEATE
  16. ASPIRIN. [Concomitant]
     Active Substance: ASPIRIN
  17. SULFA                              /00150702/ [Concomitant]
     Active Substance: UNSPECIFIED INGREDIENT
  18. PHENERGAN [Concomitant]
     Active Substance: PROMETHAZINE HYDROCHLORIDE
  19. LABID [Concomitant]
     Active Substance: THEOPHYLLINE ANHYDROUS
  20. TENORMIN [Concomitant]
     Active Substance: ATENOLOL
  21. CELEBREX [Concomitant]
     Active Substance: CELECOXIB
  22. CYMBALTA [Suspect]
     Active Substance: DULOXETINE HYDROCHLORIDE
  23. GABAPENTIN. [Concomitant]
     Active Substance: GABAPENTIN
  24. CODEINE [Concomitant]
     Active Substance: CODEINE
  25. MAXZIDE [Concomitant]
     Active Substance: HYDROCHLOROTHIAZIDE\TRIAMTERENE
  26. TYLENOL [Concomitant]
     Active Substance: ACETAMINOPHEN
  27. ADVAIR DISKUS [Concomitant]
     Active Substance: FLUTICASONE PROPIONATE\SALMETEROL XINAFOATE
     Dosage: 1 DF, PRN
     Route: 048

REACTIONS (10)
  - Mental impairment [Unknown]
  - Dyspnoea [Unknown]
  - Rash [Unknown]
  - Vomiting [Unknown]
  - Stomatitis [Unknown]
  - Thyroid disorder [Unknown]
  - Nausea [Unknown]
  - Balance disorder [Unknown]
  - Swollen tongue [Unknown]
  - Aphasia [Unknown]
